FAERS Safety Report 17854639 (Version 1)
Quarter: 2020Q2

REPORT INFORMATION
  Report Type: Report from Study
  Country: US (occurrence: US)
  Receive Date: 20200603
  Receipt Date: 20200603
  Transmission Date: 20200714
  Serious: Yes (Other)
  Sender: FDA-Public Use
  Company Number: US-MYLANLABS-2020M1053695

PATIENT
  Age: 1 Year
  Sex: Female

DRUGS (9)
  1. CISPLATIN. [Suspect]
     Active Substance: CISPLATIN
     Indication: PINEALOBLASTOMA
     Route: 042
  2. THIOTEPA. [Suspect]
     Active Substance: THIOTEPA
     Indication: PINEALOBLASTOMA
     Route: 042
  3. VINCRISTINE [Suspect]
     Active Substance: VINCRISTINE
     Indication: PINEALOBLASTOMA
     Route: 042
  4. CYCLOPHOSPHAMIDE. [Suspect]
     Active Substance: CYCLOPHOSPHAMIDE
     Indication: PINEALOBLASTOMA
     Dosage: IN REGIMEN D2 THE DOSES OF CYCLOPHOSPHAMIDE WAS MODESTLY REDUCED.
     Route: 042
  5. ETOPOSIDE. [Suspect]
     Active Substance: ETOPOSIDE
     Indication: PINEALOBLASTOMA
     Route: 042
  6. CARBOPLATIN. [Suspect]
     Active Substance: CARBOPLATIN
     Indication: PINEALOBLASTOMA
     Route: 042
  7. TEMOZOLOMIDE. [Suspect]
     Active Substance: TEMOZOLOMIDE
     Indication: PINEALOBLASTOMA
     Route: 048
  8. ETOPOSIDE. [Suspect]
     Active Substance: ETOPOSIDE
     Indication: PINEALOBLASTOMA
     Route: 048
  9. METHOTREXATE. [Suspect]
     Active Substance: METHOTREXATE
     Indication: PINEALOBLASTOMA
     Dosage: IN REGIMEN D2 THE DOSES OF HIGH-DOSE METHOTREXATE WAS MODESTLY REDUCED
     Route: 042

REACTIONS (3)
  - Haematotoxicity [Recovered/Resolved]
  - Infection [Recovered/Resolved]
  - Sepsis [Recovered/Resolved]
